FAERS Safety Report 4889310-1 (Version None)
Quarter: 2006Q1

REPORT INFORMATION
  Report Type: 
  Country: None (occurrence: None)
  Receive Date: 20060124
  Receipt Date: 20060116
  Transmission Date: 20060701
  Serious: Yes (Other)
  Sender: FDA-Public Use
  Company Number: FR-JNJFOC-20060103276

PATIENT
  Sex: Female

DRUGS (2)
  1. REMICADE [Suspect]
     Indication: CROHN'S DISEASE
     Dosage: 4 INFUSIONS RECEIVED
     Route: 042
  2. IMUREL [Concomitant]
     Route: 065

REACTIONS (2)
  - DEMYELINATION [None]
  - PARAESTHESIA [None]
